FAERS Safety Report 5258506-1 (Version None)
Quarter: 2007Q1

REPORT INFORMATION
  Report Type: 
  Country: None (occurrence: None)
  Receive Date: 20070308
  Receipt Date: 20070302
  Transmission Date: 20070707
  Serious: Yes (Other)
  Sender: FDA-Public Use
  Company Number: BE-JNJFOC-20070301396

PATIENT
  Age: 5 Decade
  Sex: Male

DRUGS (3)
  1. RISPERDAL CONSTA [Suspect]
     Indication: DRUG USE FOR UNKNOWN INDICATION
     Dosage: INJECTIONS RECEIVED EITHER EVERY 2 WEEKS OR EVERY 1 WEEK
     Route: 030
     Dates: start: 20070101, end: 20070221
  2. ETUMINE [Concomitant]
     Route: 065
  3. ANTABUSE [Concomitant]
     Route: 065

REACTIONS (1)
  - NEUTROPENIA [None]
